FAERS Safety Report 19007075 (Version 1)
Quarter: 2021Q1

REPORT INFORMATION
  Report Type: Spontaneous
  Country: US (occurrence: US)
  Receive Date: 20210314
  Receipt Date: 20210314
  Transmission Date: 20210420
  Serious: Yes (Other)
  Sender: FDA-Public Use
  Company Number: None

PATIENT
  Age: 44 Year
  Sex: Female
  Weight: 83.25 kg

DRUGS (11)
  1. TALTZ [Suspect]
     Active Substance: IXEKIZUMAB
     Indication: PSORIATIC ARTHROPATHY
     Dosage: ?          QUANTITY:1 INJECTION(S);OTHER FREQUENCY:1 INJECTION/MONTH;?
     Route: 058
     Dates: start: 20210302, end: 20210302
  2. MIRENA [Concomitant]
     Active Substance: LEVONORGESTREL
  3. SYNTHROID [Concomitant]
     Active Substance: LEVOTHYROXINE SODIUM
  4. DUREZOL [Concomitant]
     Active Substance: DIFLUPREDNATE
  5. VITAMIN D3 [Concomitant]
     Active Substance: CHOLECALCIFEROL
  6. QUETIAPINE. [Concomitant]
     Active Substance: QUETIAPINE
  7. RESTASIS [Concomitant]
     Active Substance: CYCLOSPORINE
  8. GABAPENTIN. [Concomitant]
     Active Substance: GABAPENTIN
  9. LITHIUM CARBONATE. [Concomitant]
     Active Substance: LITHIUM CARBONATE
  10. TRAZODONE [Concomitant]
     Active Substance: TRAZODONE HYDROCHLORIDE
  11. BIOTIN [Concomitant]
     Active Substance: BIOTIN

REACTIONS (4)
  - Injection site pain [None]
  - Rash papular [None]
  - Pain in extremity [None]
  - Psoriasis [None]

NARRATIVE: CASE EVENT DATE: 20210313
